FAERS Safety Report 6222252-8 (Version None)
Quarter: 2009Q2

REPORT INFORMATION
  Report Type: 
  Country: None (occurrence: None)
  Receive Date: 20090611
  Receipt Date: 20090528
  Transmission Date: 20091009
  Serious: Yes (Other)
  Sender: FDA-Public Use
  Company Number: FR-CELGENEUS-056-20484-09060203

PATIENT
  Sex: Female

DRUGS (4)
  1. INNOHEP [Suspect]
     Route: 058
  2. INNOHEP [Suspect]
     Route: 058
  3. KARDEGIC [Concomitant]
     Indication: DRUG USE FOR UNKNOWN INDICATION
     Route: 065
  4. PRASUGREL [Concomitant]
     Indication: DRUG USE FOR UNKNOWN INDICATION
     Route: 065

REACTIONS (2)
  - DRUG EXPOSURE DURING PREGNANCY [None]
  - INTERVERTEBRAL DISC COMPRESSION [None]
